FAERS Safety Report 5740159-7 (Version None)
Quarter: 2008Q2

REPORT INFORMATION
  Report Type: 
  Country: None (occurrence: None)
  Receive Date: 20080516
  Receipt Date: 20080505
  Transmission Date: 20081010
  Serious: Yes (Hospitalization)
  Sender: FDA-Public Use
  Company Number: US-WYE-H01599407

PATIENT
  Sex: Female

DRUGS (4)
  1. PREMPRO [Suspect]
  2. PROVERA [Suspect]
  3. FEMHRT [Suspect]
  4. PREMARIN [Suspect]

REACTIONS (2)
  - ISCHAEMIC STROKE [None]
  - TRANSIENT ISCHAEMIC ATTACK [None]
